FAERS Safety Report 4592145-0 (Version None)
Quarter: 2005Q1

REPORT INFORMATION
  Report Type: 
  Country: None (occurrence: None)
  Receive Date: 20050226
  Receipt Date: 20050203
  Transmission Date: 20050727
  Serious: Yes (Hospitalization)
  Sender: FDA-Public Use
  Company Number: JP-MERCK-0502USA00429

PATIENT
  Age: 64 Year
  Sex: Female

DRUGS (7)
  1. SINGULAIR [Suspect]
     Route: 048
     Dates: end: 20050112
  2. MUCOSOLVAN [Suspect]
     Route: 048
     Dates: end: 20050112
  3. THEO-DUR [Concomitant]
     Route: 048
     Dates: end: 20050112
  4. KLARICID [Concomitant]
     Route: 048
     Dates: end: 20050112
  5. NOLEPTAN [Concomitant]
     Route: 048
     Dates: end: 20050112
  6. TEPRENONE [Concomitant]
     Route: 048
     Dates: end: 20050112
  7. ZOLPIDEM TARTRATE [Concomitant]
     Route: 048

REACTIONS (1)
  - HEPATIC FUNCTION ABNORMAL [None]
